FAERS Safety Report 16687423 (Version 1)
Quarter: 2019Q4

REPORT INFORMATION
  Report Type: Spontaneous
  Country: US (occurrence: US)
  Receive Date: 20190808
  Receipt Date: 20190808
  Transmission Date: 20200122
  Serious: Yes (Life-Threatening, Hospitalization)
  Sender: FDA-Public Use
  Company Number: None

PATIENT
  Age: 59 Year
  Sex: Male
  Weight: 95 kg

DRUGS (1)
  1. XELJANZ [Suspect]
     Active Substance: TOFACITINIB CITRATE
     Indication: RHEUMATOID ARTHRITIS
     Route: 048
     Dates: start: 20190301, end: 20190727

REACTIONS (6)
  - Pleural effusion [None]
  - Embolism [None]
  - Peripheral artery bypass [None]
  - Lung abscess [None]
  - Acute myocardial infarction [None]
  - Pneumonia [None]

NARRATIVE: CASE EVENT DATE: 20190406
